FAERS Safety Report 8536834-1 (Version None)
Quarter: 2012Q3

REPORT INFORMATION
  Report Type: 
  Country: None (occurrence: None)
  Receive Date: 20120725
  Receipt Date: 20120723
  Transmission Date: 20120928
  Serious: Yes (Hospitalization, Other)
  Sender: FDA-Public Use
  Company Number: VE-ELI_LILLY_AND_COMPANY-VE201207005539

PATIENT

DRUGS (2)
  1. HUMALOG MIX 75/25 [Suspect]
     Dosage: 10 IU, BID
     Route: 064
     Dates: start: 20120229, end: 20120302
  2. HUMALOG MIX 75/25 [Suspect]
     Dosage: UNK

REACTIONS (4)
  - CONVULSION [None]
  - FOETAL EXPOSURE DURING PREGNANCY [None]
  - OXYGEN CONSUMPTION DECREASED [None]
  - PREMATURE BABY [None]
